FAERS Safety Report 5409961-5 (Version None)
Quarter: 2007Q3

REPORT INFORMATION
  Report Type: 
  Country: None (occurrence: None)
  Receive Date: 20070713
  Receipt Date: 20070426
  Transmission Date: 20080115
  Serious: No
  Sender: FDA-Public Use
  Company Number: 2007SP001531

PATIENT
  Age: 38 Year
  Sex: Female
  Weight: 91.173 kg

DRUGS (2)
  1. LUNESTA [Suspect]
     Indication: INSOMNIA
     Dosage: 3 MG; ORAL
     Route: 048
     Dates: start: 20061201, end: 20070401
  2. MAXZIDE [Concomitant]

REACTIONS (1)
  - DYSGEUSIA [None]
